FAERS Safety Report 6098895-1 (Version None)
Quarter: 2009Q1

REPORT INFORMATION
  Report Type: 
  Country: None (occurrence: None)
  Receive Date: 20090302
  Receipt Date: 20090219
  Transmission Date: 20090719
  Serious: Yes (Hospitalization)
  Sender: FDA-Public Use
  Company Number: CH-WYE-H08375109

PATIENT
  Age: 63 Year
  Sex: Female

DRUGS (8)
  1. CORDARONE [Interacting]
     Route: 048
     Dates: start: 20080601, end: 20081206
  2. ALISKIREN [Suspect]
     Route: 048
     Dates: start: 20080601, end: 20081203
  3. OMEPRAZOLE [Concomitant]
     Route: 048
     Dates: start: 19980101
  4. ANASTROZOLE [Suspect]
     Indication: BREAST CANCER
     Route: 048
     Dates: start: 20030101, end: 20081203
  5. HYDROXYUREA [Suspect]
     Indication: MYELOPROLIFERATIVE DISORDER
     Route: 048
     Dates: start: 19980101, end: 20081203
  6. ACENOCOUMAROL [Concomitant]
     Indication: MYELOPROLIFERATIVE DISORDER
     Dosage: UNSPECIFIED
     Route: 048
     Dates: start: 19980101
  7. CARVEDILOL [Interacting]
     Route: 048
     Dates: start: 20080601, end: 20081203
  8. ALDOZONE [Suspect]
     Indication: CARDIAC FAILURE CONGESTIVE
     Dosage: 1 UNIT EVERY 1 DAY
     Route: 048
     Dates: start: 20050101, end: 20081203

REACTIONS (4)
  - ATRIOVENTRICULAR BLOCK COMPLETE [None]
  - CHOLESTASIS [None]
  - DRUG INTERACTION [None]
  - HEPATITIS CHOLESTATIC [None]
